FAERS Safety Report 24155077 (Version 1)
Quarter: 2024Q3

REPORT INFORMATION
  Report Type: Spontaneous
  Country: CA (occurrence: CA)
  Receive Date: 20240731
  Receipt Date: 20240731
  Transmission Date: 20241016
  Serious: Yes (Hospitalization)
  Sender: UCB
  Company Number: CA-UCBSA-2024038113

PATIENT
  Age: 5 Year
  Sex: Male
  Weight: 17 kg

DRUGS (1)
  1. BRIVARACETAM [Suspect]
     Active Substance: BRIVARACETAM
     Indication: Epilepsy
     Dosage: 60 MILLIGRAM, 2X/DAY (BID)
     Route: 048

REACTIONS (3)
  - Dysphemia [Recovering/Resolving]
  - Somnolence [Recovering/Resolving]
  - Off label use [Unknown]
